FAERS Safety Report 19493058 (Version 1)
Quarter: 2021Q3

REPORT INFORMATION
  Report Type: Spontaneous
  Country: AR (occurrence: AR)
  Receive Date: 20210705
  Receipt Date: 20210705
  Transmission Date: 20211014
  Serious: Yes (Other)
  Sender: FDA-Public Use
  Company Number: NVSC2021AR148993

PATIENT
  Sex: Female

DRUGS (1)
  1. TOFRANIL [Suspect]
     Active Substance: IMIPRAMINE HYDROCHLORIDE
     Indication: EPILEPSY
     Dosage: 2 DF, QD (2 OF 25 PER DAY)
     Route: 065

REACTIONS (2)
  - Muscle disorder [Unknown]
  - Epilepsy [Not Recovered/Not Resolved]
